FAERS Safety Report 8014543-5 (Version None)
Quarter: 2011Q4

REPORT INFORMATION
  Report Type: 
  Country: None (occurrence: None)
  Receive Date: 20111229
  Receipt Date: 20111219
  Transmission Date: 20120403
  Serious: Yes (Hospitalization)
  Sender: FDA-Public Use
  Company Number: JP-GLAXOSMITHKLINE-B0714887A

PATIENT
  Sex: Female
  Weight: 45 kg

DRUGS (4)
  1. XELODA [Concomitant]
     Dosage: 1500MG PER DAY
     Route: 048
     Dates: start: 20090806, end: 20090920
  2. XELODA [Concomitant]
     Dosage: 1500MG PER DAY
     Route: 048
     Dates: start: 20091007, end: 20091110
  3. TYKERB [Suspect]
     Indication: BREAST CANCER
     Dosage: 1250MG PER DAY
     Route: 048
     Dates: start: 20090806, end: 20090920
  4. TYKERB [Suspect]
     Dosage: 1250MG PER DAY
     Route: 048
     Dates: start: 20091007, end: 20091110

REACTIONS (2)
  - DECREASED APPETITE [None]
  - MALAISE [None]
